FAERS Safety Report 9187048 (Version 3)
Quarter: 2013Q3

REPORT INFORMATION
  Report Type: Spontaneous
  Country: FR (occurrence: FR)
  Receive Date: 20130325
  Receipt Date: 20130913
  Transmission Date: 20140515
  Serious: Yes (Other)
  Sender: FDA-Public Use
  Company Number: FR-JNJFOC-20130307603

PATIENT
  Age: 26 Year
  Sex: Male

DRUGS (1)
  1. RISPERDAL CONSTA LP [Suspect]
     Indication: PSYCHOTIC DISORDER
     Dosage: SINCE MORE THAN 10 YEARS
     Route: 030
     Dates: start: 20100309

REACTIONS (1)
  - Accommodation disorder [Unknown]
